FAERS Safety Report 25016740 (Version 1)
Quarter: 2025Q1

REPORT INFORMATION
  Report Type: Spontaneous
  Country: US (occurrence: US)
  Receive Date: 20250227
  Receipt Date: 20250227
  Transmission Date: 20250409
  Serious: No
  Sender: UCB
  Company Number: US-UCBSA-2023060937

PATIENT
  Age: 71 Year
  Sex: Female

DRUGS (6)
  1. LEVETIRACETAM [Suspect]
     Active Substance: LEVETIRACETAM
     Indication: Seizure prophylaxis
     Dosage: 500 MILLIGRAM, 2X/DAY (BID)
  2. LEVETIRACETAM [Suspect]
     Active Substance: LEVETIRACETAM
     Indication: Off label use
  3. ENOXAPARIN [Concomitant]
     Active Substance: ENOXAPARIN
     Indication: Fibrin D dimer increased
     Route: 058
  4. ENOXAPARIN [Concomitant]
     Active Substance: ENOXAPARIN
     Indication: Blood fibrinogen increased
  5. REMDESIVIR [Concomitant]
     Active Substance: REMDESIVIR
     Indication: COVID-19
     Dosage: UNK, ONCE DAILY (QD)
  6. DEXAMETHASONE [Concomitant]
     Active Substance: DEXAMETHASONE
     Indication: Product used for unknown indication

REACTIONS (1)
  - No adverse event [Unknown]
